FAERS Safety Report 10370750 (Version 1)
Quarter: 2014Q1

REPORT INFORMATION
  Report Type: Spontaneous
  Country: US (occurrence: None)
  Receive Date: 20140306
  Receipt Date: 20140306
  Transmission Date: 20141002
  Serious: Yes (Other)
  Sender: FDA-Public Use
  Company Number: 163-21880-13071607

PATIENT
  Age: 57 Year
  Sex: Male

DRUGS (16)
  1. REVLIMID (LENALIDOMIDE) (25 MILLIGRAM, CAPSULES) [Suspect]
     Indication: PLASMA CELL MYELOMA
     Route: 048
     Dates: start: 20121025
  2. CENTRUM SILVER (CENTRUM SILVER) (TABLETS) [Concomitant]
  3. BENEFIBER (CYAMOPSIS TETRAGONOLOBA GUM) [Concomitant]
  4. BIAXIN (CLARITHROMYCIN) (TABLETS) [Concomitant]
  5. PRILOSEC DR (OMEPRAZOLE) (CAPSULES) [Concomitant]
  6. BIOTIN (BIOTIN) (TABLETS) [Concomitant]
  7. EQL NIACIN (NICOTINIC ACID) (TABLETS) [Concomitant]
  8. FLAXSEED OIL (LINSEED OIL) (CAPSULES) [Concomitant]
  9. FISH OIL (FISH OIL) [Concomitant]
  10. CURCUMIN (CURCUMIN) (POWDER) [Concomitant]
  11. MAGNESIUM (MAGNESIUM) (TABLETS) [Concomitant]
  12. ASPIRIN EC (ACETYLSALICYLIC ACID) (ENTERIC-COATED TABLET) [Concomitant]
  13. ALPRAZOLAM (ALPRAZOLAM) (TABLETS) [Concomitant]
  14. PROBIOTIC FORMULA (BIFIDOBACTERIUM LACTIS) (CAPSULES) [Concomitant]
  15. VITAMIN A + D (VITAMIDYNE A AND D) (CAPSULES) [Concomitant]
  16. ZOMETA (ZOLEDRONIC ACID) (INJECTION) [Concomitant]

REACTIONS (3)
  - Rash [None]
  - Muscle spasms [None]
  - Atrial fibrillation [None]
